FAERS Safety Report 17591423 (Version 1)
Quarter: 2020Q1

REPORT INFORMATION
  Report Type: Spontaneous
  Country: US (occurrence: US)
  Receive Date: 20200327
  Receipt Date: 20200327
  Transmission Date: 20200409
  Serious: No
  Sender: FDA-Public Use
  Company Number: US-VERTEX PHARMACEUTICALS-2020-006444

PATIENT
  Sex: Female
  Weight: 47 kg

DRUGS (3)
  1. OMEGA 3 [FISH OIL] [Concomitant]
     Active Substance: FISH OIL
  2. TRIKAFTA [Suspect]
     Active Substance: ELEXACAFTOR\IVACAFTOR\TEZACAFTOR
     Indication: CYSTIC FIBROSIS
     Dosage: 100G ELEXACAFTOR/50MGTEZACAFTOR/75MGIVACAFTOR AND150MG IVACAFTOR)BID
     Route: 048
     Dates: start: 2020
  3. CREON [Concomitant]
     Active Substance: PANCRELIPASE AMYLASE\PANCRELIPASE LIPASE\PANCRELIPASE PROTEASE

REACTIONS (2)
  - Productive cough [Not Recovered/Not Resolved]
  - Sputum discoloured [Not Recovered/Not Resolved]
